FAERS Safety Report 23471722 (Version 1)
Quarter: 2024Q1

REPORT INFORMATION
  Report Type: Spontaneous
  Country: US (occurrence: US)
  Receive Date: 20240202
  Receipt Date: 20240202
  Transmission Date: 20240409
  Serious: Yes (Death)
  Sender: FDA-Public Use
  Company Number: US-SPECGX-T202400052

PATIENT
  Age: 66 Year
  Sex: Female

DRUGS (4)
  1. ROXICODONE [Suspect]
     Active Substance: OXYCODONE HYDROCHLORIDE
     Indication: Product used for unknown indication
     Dosage: UNK
     Route: 048
  2. ROXICODONE [Suspect]
     Active Substance: OXYCODONE HYDROCHLORIDE
     Dosage: UNK
  3. CARBON MONOXIDE [Suspect]
     Active Substance: CARBON MONOXIDE
     Indication: Product used for unknown indication
     Dosage: UNK
     Route: 048
  4. CARBON MONOXIDE [Suspect]
     Active Substance: CARBON MONOXIDE
     Dosage: UNK

REACTIONS (2)
  - Completed suicide [Fatal]
  - Incorrect route of product administration [Fatal]

NARRATIVE: CASE EVENT DATE: 20220101
